FAERS Safety Report 5127153-4 (Version None)
Quarter: 2006Q4

REPORT INFORMATION
  Report Type: 
  Country: None (occurrence: None)
  Receive Date: 20061010
  Receipt Date: 20060926
  Transmission Date: 20070319
  Serious: Yes (Other)
  Sender: FDA-Public Use
  Company Number: 2006072766

PATIENT
  Age: 52 Year
  Sex: Female

DRUGS (1)
  1. DETRUSITOL SR (TOLTERODINE) [Suspect]
     Indication: BLADDER DISORDER
     Dosage: ORAL
     Route: 048
     Dates: start: 20050101, end: 20060101

REACTIONS (5)
  - MACULAR OEDEMA [None]
  - MACULAR REFLEX ABNORMAL [None]
  - SCOTOMA [None]
  - VISUAL ACUITY REDUCED [None]
  - VISUAL FIELD DEFECT [None]
